FAERS Safety Report 7960391-1 (Version None)
Quarter: 2011Q4

REPORT INFORMATION
  Report Type: 
  Country: None (occurrence: None)
  Receive Date: 20111206
  Receipt Date: 20111128
  Transmission Date: 20120403
  Serious: Yes (Hospitalization, Other)
  Sender: FDA-Public Use
  Company Number: JP-ROCHE-GNE304922

PATIENT
  Sex: Male

DRUGS (13)
  1. LEVOFLOXACIN [Concomitant]
     Dosage: UNK
     Dates: start: 20090424, end: 20090628
  2. CANDESARTAN CILEXETIL [Concomitant]
     Indication: PRODUCT USED FOR UNKNOWN INDICATION
     Dosage: UNK
     Dates: start: 20100501
  3. FLOMOX [Concomitant]
     Indication: PRODUCT USED FOR UNKNOWN INDICATION
     Dosage: UNK
     Dates: start: 20091120, end: 20091122
  4. CARVEDILOL [Concomitant]
     Indication: PRODUCT USED FOR UNKNOWN INDICATION
     Dosage: UNK
     Dates: start: 20100501
  5. RANIBIZUMAB [Suspect]
     Route: 050
     Dates: start: 20090626
  6. HYALEIN [Concomitant]
     Indication: PRODUCT USED FOR UNKNOWN INDICATION
  7. RANIBIZUMAB [Suspect]
     Indication: AGE-RELATED MACULAR DEGENERATION
     Dosage: 0.05 ML, UNK
     Route: 050
     Dates: start: 20090424
  8. RANIBIZUMAB [Suspect]
     Route: 050
     Dates: start: 20100614
  9. LEVOFLOXACIN [Concomitant]
     Indication: PRODUCT USED FOR UNKNOWN INDICATION
     Dosage: UNK
     Dates: start: 20090501, end: 20090601
  10. RANIBIZUMAB [Suspect]
     Route: 050
     Dates: start: 20091120
  11. RANIBIZUMAB [Suspect]
     Route: 050
     Dates: start: 20100716
  12. ALLEGRA [Concomitant]
     Indication: PRODUCT USED FOR UNKNOWN INDICATION
     Dosage: UNK
     Dates: start: 20100501
  13. RANIBIZUMAB [Suspect]
     Route: 050
     Dates: start: 20090529

REACTIONS (3)
  - CEREBRAL INFARCTION [None]
  - HYPERTENSION [None]
  - ARRHYTHMIA [None]
